FAERS Safety Report 10172251 (Version 1)
Quarter: 2014Q2

REPORT INFORMATION
  Report Type: Spontaneous
  Country: US (occurrence: US)
  Receive Date: 20140515
  Receipt Date: 20140515
  Transmission Date: 20141212
  Serious: No
  Sender: FDA-Public Use
  Company Number: US-ASTRAZENECA-2013SE58191

PATIENT
  Age: 56 Year
  Sex: Female
  Weight: 107 kg

DRUGS (1)
  1. ZOLADEX [Suspect]
     Indication: BREAST CANCER
     Route: 058

REACTIONS (1)
  - Oestradiol increased [Unknown]
